FAERS Safety Report 7403132-9 (Version None)
Quarter: 2011Q2

REPORT INFORMATION
  Report Type: 
  Country: None (occurrence: None)
  Receive Date: 20110408
  Receipt Date: 20100611
  Transmission Date: 20111010
  Serious: No
  Sender: FDA-Public Use
  Company Number: US-MYLANLABS-2010S1010458

PATIENT
  Age: 59 Year
  Sex: Male

DRUGS (2)
  1. BICALUTAMIDE [Suspect]
     Indication: PROSTATE CANCER
     Route: 048
     Dates: start: 20091102, end: 20091201
  2. BICALUTAMIDE [Suspect]
     Route: 048
     Dates: start: 20100526

REACTIONS (3)
  - FATIGUE [None]
  - ARTHRALGIA [None]
  - PELVIC PAIN [None]
